FAERS Safety Report 25799667 (Version 1)
Quarter: 2025Q3

REPORT INFORMATION
  Report Type: Spontaneous
  Country: EU (occurrence: EU)
  Receive Date: 20250914
  Receipt Date: 20250914
  Transmission Date: 20251021
  Serious: Yes (Hospitalization, Other)
  Sender: UCB
  Company Number: None

PATIENT
  Age: 29 Year
  Sex: Male
  Weight: 95 kg

DRUGS (2)
  1. CIMZIA [Suspect]
     Active Substance: CERTOLIZUMAB PEGOL
     Indication: Ankylosing spondylitis
     Route: 058
     Dates: start: 20241004, end: 20241004
  2. VOLTARENE (DICLOFENAC SODIUM) [Concomitant]
     Active Substance: DICLOFENAC SODIUM
     Indication: Ankylosing spondylitis
     Route: 048

REACTIONS (1)
  - Anaphylactic shock [Recovered/Resolved]

NARRATIVE: CASE EVENT DATE: 20241004
